FAERS Safety Report 8429514-4 (Version None)
Quarter: 2012Q2

REPORT INFORMATION
  Report Type: 
  Country: None (occurrence: None)
  Receive Date: 20120612
  Receipt Date: 20120604
  Transmission Date: 20120825
  Serious: Yes (Hospitalization)
  Sender: FDA-Public Use
  Company Number: US-BAYER-2012-023744

PATIENT
  Age: 36 Year
  Sex: Female

DRUGS (9)
  1. ASPIRIN [Concomitant]
     Dosage: 81 MG DAILY
     Route: 048
     Dates: start: 20080827
  2. MICRO-K [Concomitant]
     Dosage: 10 MEQ, DAILY
     Route: 048
     Dates: start: 20080807
  3. SYNTHROID [Concomitant]
     Dosage: 200 MCG DAILY
  4. LEVOXYL [Concomitant]
     Dosage: 0.2 MG, DAILY
     Dates: start: 20080827
  5. YASMIN [Suspect]
     Route: 048
  6. ASPIRIN [Concomitant]
  7. LEVOTHYROXINE SODIUM [Concomitant]
     Dosage: 200 MCG/24HR, UNK
     Route: 048
     Dates: start: 20080604
  8. FUROSEMIDE [Concomitant]
     Dosage: 20 MG DAILY
     Route: 048
     Dates: start: 20080827
  9. LASIX [Concomitant]
     Dosage: 20 MG DAILY

REACTIONS (2)
  - DEEP VEIN THROMBOSIS [None]
  - PULMONARY EMBOLISM [None]
